FAERS Safety Report 16667104 (Version 1)
Quarter: 2019Q3

REPORT INFORMATION
  Report Type: Spontaneous
  Country: US (occurrence: US)
  Receive Date: 20190805
  Receipt Date: 20190805
  Transmission Date: 20191004
  Serious: Yes (Other)
  Sender: FDA-Public Use
  Company Number: US-LUNDBECK-DKLU3001715

PATIENT
  Age: 39 Year
  Sex: Female

DRUGS (1)
  1. NORTHERA [Suspect]
     Active Substance: DROXIDOPA
     Indication: PRODUCT USED FOR UNKNOWN INDICATION
     Route: 048

REACTIONS (4)
  - Skin burning sensation [Unknown]
  - Loss of consciousness [Unknown]
  - Syncope [Unknown]
  - Pruritus [Unknown]

NARRATIVE: CASE EVENT DATE: 201907
